FAERS Safety Report 5206742-2 (Version None)
Quarter: 2006Q4

REPORT INFORMATION
  Report Type: 
  Country: None (occurrence: None)
  Receive Date: 20061030
  Receipt Date: 20060922
  Transmission Date: 20070319
  Serious: No
  Sender: FDA-Public Use
  Company Number: 257192

PATIENT
  Age: 80 Year
  Sex: Male
  Weight: 77.1 kg

DRUGS (3)
  1. LEVEMIR [Suspect]
     Indication: INSULIN-REQUIRING TYPE II DIABETES MELLITUS
     Dosage: 7 IU, QD, SUBCUTANEOUS; 3IU, BID, SUBCUTANEOUS
     Route: 058
     Dates: start: 20060201, end: 20060915
  2. LEVEMIR [Suspect]
     Indication: INSULIN-REQUIRING TYPE II DIABETES MELLITUS
     Dosage: 7 IU, QD, SUBCUTANEOUS; 3IU, BID, SUBCUTANEOUS
     Route: 058
     Dates: start: 20060915
  3. HUMALOG [Concomitant]

REACTIONS (1)
  - BLOOD GLUCOSE DECREASED [None]
